FAERS Safety Report 17504855 (Version 4)
Quarter: 2020Q4

REPORT INFORMATION
  Report Type: Spontaneous
  Country: PT (occurrence: PT)
  Receive Date: 20200305
  Receipt Date: 20201224
  Transmission Date: 20210113
  Serious: No
  Sender: FDA-Public Use
  Company Number: PT-ASTRAZENECA-2019SF49774

PATIENT
  Age: 66 Year
  Sex: Male

DRUGS (12)
  1. AZITHROMYCIN ANHYDROUS. [Concomitant]
     Active Substance: AZITHROMYCIN ANHYDROUS
     Dosage: (500 MG, Q24H) FOR 3 DAYS
     Route: 065
  2. METHYLPREDNISONE [Concomitant]
     Active Substance: METHYLPREDNISOLONE
     Dosage: 1.0MG/KG UNKNOWN
     Route: 042
  3. FASENRA [Suspect]
     Active Substance: BENRALIZUMAB
     Indication: HYPEREOSINOPHILIC SYNDROME
     Dosage: 8/8 WEEK INTERVALS
     Route: 058
  4. AMOXICILLIN/CLAVULANIC ACID [Concomitant]
     Active Substance: AMOXICILLIN\CLAVULANIC ACID
     Dosage: (875MG/125MG, Q12H) FOR 8 DAYS
     Route: 065
  5. METHYLPREDNISONE [Concomitant]
     Active Substance: METHYLPREDNISOLONE
     Dosage: 40.0MG UNKNOWN
     Route: 042
  6. METHYLPREDNISONE [Concomitant]
     Active Substance: METHYLPREDNISOLONE
     Dosage: 5.0MG UNKNOWN
     Route: 042
  7. FASENRA [Suspect]
     Active Substance: BENRALIZUMAB
     Indication: HYPEREOSINOPHILIC SYNDROME
     Dosage: 4/4 WEEK INTERVALS FOR THE FIRST THREE ADMINISTRATIONS
     Route: 058
     Dates: start: 201910
  8. CLARITHROMYCIN. [Concomitant]
     Active Substance: CLARITHROMYCIN
     Route: 065
  9. METHYLPREDNISONE [Concomitant]
     Active Substance: METHYLPREDNISOLONE
     Dosage: 1.0G UNKNOWN
     Route: 042
  10. CEFTRIAXONE. [Concomitant]
     Active Substance: CEFTRIAXONE
     Route: 065
  11. FASENRA [Suspect]
     Active Substance: BENRALIZUMAB
     Indication: HYPEREOSINOPHILIC SYNDROME
     Route: 058
  12. METHYLPREDNISONE [Concomitant]
     Active Substance: METHYLPREDNISOLONE
     Dosage: 20.0MG UNKNOWN
     Route: 042

REACTIONS (3)
  - Off label use [Not Recovered/Not Resolved]
  - Inappropriate schedule of product administration [Unknown]
  - Drug ineffective [Unknown]
